FAERS Safety Report 23362898 (Version 1)
Quarter: 2024Q1

REPORT INFORMATION
  Report Type: Spontaneous
  Country: CN (occurrence: CN)
  Receive Date: 20240103
  Receipt Date: 20240103
  Transmission Date: 20240410
  Serious: Yes (Other)
  Sender: FDA-Public Use
  Company Number: CN-Eisai-EC-2023-155722

PATIENT
  Age: 64 Year
  Sex: Male
  Weight: 48 kg

DRUGS (4)
  1. HALAVEN [Suspect]
     Active Substance: ERIBULIN MESYLATE
     Indication: Fibrosarcoma
     Route: 041
     Dates: start: 20230419
  2. HALAVEN [Suspect]
     Active Substance: ERIBULIN MESYLATE
     Indication: Adenoid cystic carcinoma
  3. CATEQUENTINIB [Suspect]
     Active Substance: CATEQUENTINIB
     Indication: Fibrosarcoma
     Dosage: FREQUENCY UNKNOWN
     Route: 048
     Dates: start: 20230419, end: 20230423
  4. CATEQUENTINIB [Suspect]
     Active Substance: CATEQUENTINIB
     Indication: Adenoid cystic carcinoma

REACTIONS (1)
  - Oral infection [Not Recovered/Not Resolved]

NARRATIVE: CASE EVENT DATE: 20230504
